FAERS Safety Report 10035731 (Version 1)
Quarter: 2014Q1

REPORT INFORMATION
  Report Type: Spontaneous
  Country: BR (occurrence: BR)
  Receive Date: 20140325
  Receipt Date: 20140325
  Transmission Date: 20141002
  Serious: Yes (Other)
  Sender: FDA-Public Use
  Company Number: BR-GLAXOSMITHKLINE-A1066403A

PATIENT
  Age: 62 Year
  Sex: Male
  Weight: 72 kg

DRUGS (4)
  1. COMBODART [Suspect]
     Indication: BENIGN PROSTATIC HYPERPLASIA
     Dosage: 1CAP PER DAY
     Route: 048
     Dates: start: 20140311
  2. ACETYLSALICYLIC ACID [Concomitant]
  3. SIMVASTATIN [Concomitant]
  4. VITAMIN [Concomitant]

REACTIONS (1)
  - Rectal haemorrhage [Not Recovered/Not Resolved]
